FAERS Safety Report 10074934 (Version 2)
Quarter: 2014Q3

REPORT INFORMATION
  Report Type: Spontaneous
  Country: US (occurrence: US)
  Receive Date: 20140414
  Receipt Date: 20140714
  Transmission Date: 20150326
  Serious: No
  Sender: FDA-Public Use
  Company Number: US-009507513-1403USA013010

PATIENT
  Sex: Female

DRUGS (1)
  1. COZAAR [Suspect]
     Active Substance: LOSARTAN POTASSIUM
     Dosage: 100 MG, BID
     Route: 048
     Dates: start: 2011

REACTIONS (8)
  - Chest pain [Recovered/Resolved]
  - No adverse event [Unknown]
  - Product counterfeit [Unknown]
  - Overdose [Unknown]
  - Product shape issue [Unknown]
  - Drug dose omission [Unknown]
  - Blood pressure increased [Unknown]
  - Product quality issue [Unknown]
